FAERS Safety Report 21183411 (Version 5)
Quarter: 2022Q4

REPORT INFORMATION
  Report Type: Spontaneous
  Country: PL (occurrence: PL)
  Receive Date: 20220808
  Receipt Date: 20221008
  Transmission Date: 20230113
  Serious: Yes (Death, Other)
  Sender: FDA-Public Use
  Company Number: PL-002147023-PHHY2019PL150069

PATIENT
  Age: 13 Year
  Sex: Female

DRUGS (38)
  1. ETANERCEPT [Suspect]
     Active Substance: ETANERCEPT
     Indication: Hepatic failure
     Dosage: UNK
     Route: 065
  2. FILGRASTIM [Suspect]
     Active Substance: FILGRASTIM
     Indication: Cytopenia
     Dosage: UNK, 6 X30 MG/M2
     Route: 065
  3. FILGRASTIM [Suspect]
     Active Substance: FILGRASTIM
     Indication: Hepatic failure
     Dosage: UNK
     Route: 065
  4. FILGRASTIM [Suspect]
     Active Substance: FILGRASTIM
     Indication: Neutropenia
     Dosage: UNK
     Route: 065
  5. METHYLPREDNISOLONE SODIUM SUCCINATE [Suspect]
     Active Substance: METHYLPREDNISOLONE SODIUM SUCCINATE
     Indication: Graft versus host disease in skin
     Dosage: UNK, 2 MG/KG B.W
     Route: 042
  6. METHYLPREDNISOLONE SODIUM SUCCINATE [Suspect]
     Active Substance: METHYLPREDNISOLONE SODIUM SUCCINATE
     Dosage: UNK, 2 MG/KG B.W
     Route: 042
  7. RUXOLITINIB [Suspect]
     Active Substance: RUXOLITINIB
     Indication: Hepatic failure
     Dosage: UNK
     Route: 065
  8. RUXOLITINIB [Suspect]
     Active Substance: RUXOLITINIB
     Indication: Immunosuppression
     Dosage: UNK
     Route: 065
  9. RUXOLITINIB [Suspect]
     Active Substance: RUXOLITINIB
     Indication: Hepatic failure
  10. BASILIXIMAB [Suspect]
     Active Substance: BASILIXIMAB
     Indication: Hepatic failure
     Dosage: UNK
     Route: 065
  11. BASILIXIMAB [Suspect]
     Active Substance: BASILIXIMAB
     Indication: Immunosuppression
     Dosage: UNK
     Route: 065
  12. BASILIXIMAB [Suspect]
     Active Substance: BASILIXIMAB
     Indication: Hepatic failure
  13. FOSCARNET [Concomitant]
     Active Substance: FOSCARNET
     Indication: Cytomegalovirus infection reactivation
     Dosage: UNK
  14. FOSCARNET [Concomitant]
     Active Substance: FOSCARNET
     Indication: Cytomegalovirus infection
     Dosage: UNK
  15. GANCICLOVIR [Concomitant]
     Active Substance: GANCICLOVIR
     Indication: Cytomegalovirus infection
     Dosage: UNK
  16. GANCICLOVIR [Concomitant]
     Active Substance: GANCICLOVIR
     Indication: Cytomegalovirus viraemia
     Dosage: UNK
  17. MYCOPHENOLATE MOFETIL [Concomitant]
     Active Substance: MYCOPHENOLATE MOFETIL
     Indication: Prophylaxis against graft versus host disease
     Dosage: UNK
  18. MYCOPHENOLATE MOFETIL [Concomitant]
     Active Substance: MYCOPHENOLATE MOFETIL
     Indication: Graft versus host disease
     Dosage: UNK
  19. MYCOPHENOLATE MOFETIL [Concomitant]
     Active Substance: MYCOPHENOLATE MOFETIL
     Indication: Immunosuppressant drug therapy
     Dosage: UNK
  20. MYCOPHENOLATE MOFETIL [Concomitant]
     Active Substance: MYCOPHENOLATE MOFETIL
     Indication: Haematopoietic stem cell mobilisation
  21. CYCLOSPORINE [Concomitant]
     Active Substance: CYCLOSPORINE
     Indication: Prophylaxis against graft versus host disease
     Dosage: UNK
  22. CYCLOSPORINE [Concomitant]
     Active Substance: CYCLOSPORINE
     Indication: Immunosuppressant drug therapy
     Dosage: UNK
  23. GRAFALON [Concomitant]
     Active Substance: LAPINE T-LYMPHOCYTE IMMUNE GLOBULIN
     Indication: Congenital aplastic anaemia
     Dosage: 3 X 20 MG/KG B.W
  24. GRAFALON [Concomitant]
     Active Substance: LAPINE T-LYMPHOCYTE IMMUNE GLOBULIN
     Indication: Congenital aplastic anaemia
     Dosage: 3 X 20 MG/KG B.W
  25. CYCLOPHOSPHAMIDE [Concomitant]
     Active Substance: CYCLOPHOSPHAMIDE
     Indication: Stem cell transplant
     Dosage: UNK, 2 X20 MG/KG B.W.
  26. CYCLOPHOSPHAMIDE [Concomitant]
     Active Substance: CYCLOPHOSPHAMIDE
     Indication: Bone marrow conditioning regimen
     Dosage: UNK, UNK
  27. CYCLOPHOSPHAMIDE [Concomitant]
     Active Substance: CYCLOPHOSPHAMIDE
     Indication: Congenital aplastic anaemia
     Dosage: UNK, UNK
  28. CYCLOPHOSPHAMIDE [Concomitant]
     Active Substance: CYCLOPHOSPHAMIDE
     Indication: Congenital aplastic anaemia
  29. FLUDARABINE [Concomitant]
     Active Substance: FLUDARABINE PHOSPHATE
     Indication: Congenital aplastic anaemia
     Dosage: UNK, 6 X30 MG/M2
  30. FLUDARABINE [Concomitant]
     Active Substance: FLUDARABINE PHOSPHATE
     Indication: Stem cell transplant
     Dosage: UNK
  31. FLUDARABINE [Concomitant]
     Active Substance: FLUDARABINE PHOSPHATE
     Indication: Congenital aplastic anaemia
  32. BUSULFAN [Concomitant]
     Active Substance: BUSULFAN
     Indication: Congenital aplastic anaemia
     Dosage: UNK, 4 X 0.5 MG/KG B.W
  33. BUSULFAN [Concomitant]
     Active Substance: BUSULFAN
     Indication: Stem cell transplant
  34. BUSULFAN [Concomitant]
     Active Substance: BUSULFAN
     Indication: Bone marrow conditioning regimen
  35. BUSULFAN [Concomitant]
     Active Substance: BUSULFAN
     Indication: Congenital aplastic anaemia
  36. CIDOFOVIR [Concomitant]
     Active Substance: CIDOFOVIR
     Indication: BK virus infection
     Dosage: UNK
  37. BUDESONIDE [Concomitant]
     Active Substance: BUDESONIDE
     Dosage: UNK
  38. MELPHALAN [Concomitant]
     Active Substance: MELPHALAN
     Indication: Bone marrow conditioning regimen
     Dosage: UNK

REACTIONS (4)
  - Disease progression [Fatal]
  - Off label use [Unknown]
  - Drug ineffective for unapproved indication [Unknown]
  - Drug ineffective [Unknown]
